FAERS Safety Report 6091810-6 (Version None)
Quarter: 2009Q1

REPORT INFORMATION
  Report Type: 
  Country: None (occurrence: None)
  Receive Date: 20090225
  Receipt Date: 20080820
  Transmission Date: 20090719
  Serious: No
  Sender: FDA-Public Use
  Company Number: A0737213A

PATIENT
  Age: 44 Year
  Sex: Male

DRUGS (7)
  1. VALTREX [Suspect]
     Indication: GENITAL HERPES
     Dosage: 500MG PER DAY
     Route: 048
     Dates: start: 20080601
  2. IBUPROFEN [Concomitant]
  3. VITAMINS [Concomitant]
  4. GLYCINE 1.5% [Concomitant]
  5. PROTEIN DRINK [Concomitant]
  6. DOXAZOSIN MESYLATE [Concomitant]
  7. NEXIUM [Concomitant]

REACTIONS (3)
  - BACK PAIN [None]
  - GROIN PAIN [None]
  - TOOTH DISORDER [None]
